FAERS Safety Report 15317074 (Version 2)
Quarter: 2020Q3

REPORT INFORMATION
  Report Type: Report from Study
  Country: US (occurrence: US)
  Receive Date: 20180824
  Receipt Date: 20180928
  Transmission Date: 20201104
  Serious: Yes (Hospitalization)
  Sender: FDA-Public Use
  Company Number: US-JNJFOC-20180723775

PATIENT
  Age: 55 Year
  Sex: Female

DRUGS (16)
  1. VALTREX [Concomitant]
     Active Substance: VALACYCLOVIR HYDROCHLORIDE
     Route: 048
  2. BACTRIM DS [Concomitant]
     Active Substance: SULFAMETHOXAZOLE\TRIMETHOPRIM
     Dosage: 800?160 MG TABLET (MON, WED, FRI)
     Route: 048
  3. ZITHROMAX [Concomitant]
     Active Substance: AZITHROMYCIN DIHYDRATE
     Dosage: 250 MG, QD (ONLY ON MON + FRI)
     Route: 048
  4. ZOCOR [Concomitant]
     Active Substance: SIMVASTATIN
     Dosage: Q PM
     Route: 048
  5. PREDNISONE. [Suspect]
     Active Substance: PREDNISONE
     Indication: CHRONIC GRAFT VERSUS HOST DISEASE
     Route: 048
     Dates: start: 20180629, end: 20180711
  6. TACROLIMUS. [Suspect]
     Active Substance: TACROLIMUS
     Indication: PRODUCT USED FOR UNKNOWN INDICATION
     Dosage: CUMULATIVE DOSE: 103.5 MG
     Route: 048
     Dates: start: 20171217, end: 20180714
  7. LANTUS [Concomitant]
     Active Substance: INSULIN GLARGINE
     Dosage: 20 UNIT, Q PM
     Route: 058
  8. IBRUTINIB [Suspect]
     Active Substance: IBRUTINIB
     Indication: CHRONIC GRAFT VERSUS HOST DISEASE
     Dates: start: 20180709, end: 20180712
  9. FOLVITE [Concomitant]
     Active Substance: FOLIC ACID
     Route: 048
  10. NEXIUM [Concomitant]
     Active Substance: ESOMEPRAZOLE MAGNESIUM
     Route: 048
  11. ALDACTONE [Concomitant]
     Active Substance: SPIRONOLACTONE
     Route: 048
  12. IBRUTINIB [Suspect]
     Active Substance: IBRUTINIB
  13. PREDNISONE. [Suspect]
     Active Substance: PREDNISONE
     Indication: CHRONIC GRAFT VERSUS HOST DISEASE
     Dosage: 40MG AM   30MG PM
     Route: 048
     Dates: start: 20180712
  14. TACROLIMUS. [Suspect]
     Active Substance: TACROLIMUS
     Indication: PRODUCT USED FOR UNKNOWN INDICATION
     Dosage: CUMULATIVE DOSE: 103.5 MG
     Route: 048
     Dates: start: 20180715, end: 20180718
  15. NOVOLOG [Concomitant]
     Active Substance: INSULIN ASPART
     Dosage: 2?12 UNITS (THREE TIMES DAILY BEFORE MEALS)
     Route: 058
  16. ZOCOR [Concomitant]
     Active Substance: SIMVASTATIN
     Route: 048

REACTIONS (2)
  - Posterior reversible encephalopathy syndrome [Recovered/Resolved]
  - Hyperglycaemia [Recovered/Resolved]

NARRATIVE: CASE EVENT DATE: 20180711
